FAERS Safety Report 17338504 (Version 1)
Quarter: 2020Q1

REPORT INFORMATION
  Report Type: Spontaneous
  Country: US (occurrence: US)
  Receive Date: 20200128
  Receipt Date: 20200128
  Transmission Date: 20200409
  Serious: Yes (Disabling)
  Sender: FDA-Public Use
  Company Number: None

PATIENT
  Age: 50 Year
  Sex: Female
  Weight: 74.25 kg

DRUGS (4)
  1. ODACTRA [Suspect]
     Active Substance: DERMATOPHAGOIDES FARINAE\DERMATOPHAGOIDES PTERONYSSINUS
     Indication: MITE ALLERGY
     Dosage: ?          OTHER STRENGTH:12 SQ-HDM;QUANTITY:1 TABLET(S);?
     Route: 060
     Dates: start: 20200124, end: 20200124
  2. FISH OIL [Concomitant]
     Active Substance: FISH OIL
  3. MULTIVITAMIN [Concomitant]
     Active Substance: VITAMINS
  4. VITAMIN D [Concomitant]
     Active Substance: VITAMIN D NOS

REACTIONS (4)
  - Migraine [None]
  - Dysphonia [None]
  - Malaise [None]
  - Product complaint [None]

NARRATIVE: CASE EVENT DATE: 20200124
